FAERS Safety Report 23349490 (Version 1)
Quarter: 2023Q4

REPORT INFORMATION
  Report Type: Spontaneous
  Country: SA (occurrence: SA)
  Receive Date: 20231229
  Receipt Date: 20231229
  Transmission Date: 20240110
  Serious: Yes (Death, Hospitalization, Other)
  Sender: FDA-Public Use
  Company Number: SA-AMGEN-SAUSP2023230201

PATIENT

DRUGS (15)
  1. ADALIMUMAB [Suspect]
     Active Substance: ADALIMUMAB\ISOPROPYL ALCOHOL
     Indication: Rheumatic disorder
     Dosage: UNK
     Route: 065
  2. ANAKINRA [Concomitant]
     Active Substance: ANAKINRA
     Indication: Rheumatic disorder
     Dosage: UNK
     Route: 065
  3. INFLIXIMAB [Concomitant]
     Active Substance: INFLIXIMAB
     Indication: Rheumatic disorder
     Dosage: UNK
     Route: 065
  4. RITUXIMAB [Concomitant]
     Active Substance: RITUXIMAB
     Indication: Rheumatic disorder
     Dosage: UNK
     Route: 065
  5. CANAKINUMAB [Concomitant]
     Active Substance: CANAKINUMAB
     Indication: Rheumatic disorder
     Dosage: UNK
     Route: 065
  6. ETANERCEPT [Concomitant]
     Active Substance: ETANERCEPT
     Indication: Rheumatic disorder
     Dosage: UNK
     Route: 065
  7. BELIMUMAB [Concomitant]
     Active Substance: BELIMUMAB
     Indication: Rheumatic disorder
     Dosage: UNK
     Route: 065
  8. SECUKINUMAB [Concomitant]
     Active Substance: SECUKINUMAB
     Indication: Rheumatic disorder
     Dosage: UNK
     Route: 065
  9. TOCILIZUMAB [Concomitant]
     Active Substance: TOCILIZUMAB
     Indication: Rheumatic disorder
     Dosage: UNK
     Route: 065
  10. ABATACEPT [Concomitant]
     Active Substance: ABATACEPT
     Indication: Rheumatic disorder
     Dosage: UNK
     Route: 065
  11. RUXOLITINIB [Concomitant]
     Active Substance: RUXOLITINIB
     Indication: Rheumatic disorder
     Dosage: UNK
     Route: 065
  12. TOFACITINIB [Concomitant]
     Active Substance: TOFACITINIB
     Indication: Rheumatic disorder
     Dosage: UNK
     Route: 065
  13. BARICITINIB [Concomitant]
     Active Substance: BARICITINIB
     Indication: Rheumatic disorder
     Dosage: UNK
     Route: 065
  14. COVID-19 vaccine [Concomitant]
     Dosage: ONE DOSE
  15. COVID-19 vaccine [Concomitant]
     Dosage: TWO DOSES

REACTIONS (6)
  - Respiratory failure [Unknown]
  - COVID-19 [Fatal]
  - Myocarditis [Unknown]
  - Liver injury [Unknown]
  - Acute kidney injury [Unknown]
  - Multisystem inflammatory syndrome in children [Unknown]
